FAERS Safety Report 12202046 (Version 3)
Quarter: 2016Q2

REPORT INFORMATION
  Report Type: Spontaneous
  Country: BE (occurrence: BE)
  Receive Date: 20160322
  Receipt Date: 20160421
  Transmission Date: 20160815
  Serious: Yes (Death, Hospitalization)
  Sender: FDA-Public Use
  Company Number: BE-ABBVIE-14P-013-1268200-00

PATIENT
  Age: 80 Year
  Sex: Female

DRUGS (5)
  1. DUODOPA [Suspect]
     Active Substance: CARBIDOPA\LEVODOPA
     Dosage: AM = 2.5 ML, CD =  1.7 ML/H DURING 16H, ED = 1ML
     Route: 050
     Dates: start: 20140728, end: 20141003
  2. DUODOPA [Suspect]
     Active Substance: CARBIDOPA\LEVODOPA
     Dosage: AM DOSE= 2.5ML, CD= 1.5ML/H DURING 16HRS, ED=1 ML
     Route: 050
     Dates: start: 20141003
  3. DUODOPA [Suspect]
     Active Substance: CARBIDOPA\LEVODOPA
     Dosage: AM = 3 ML, CD = 2.8 ML/H DURING 16H, ED= 1 ML
     Route: 050
     Dates: start: 20131022, end: 20140728
  4. DUODOPA [Suspect]
     Active Substance: CARBIDOPA\LEVODOPA
     Dosage: DOSE CONTINUOUSLY MONITORED AND ACCEPTED
     Route: 050
     Dates: start: 20111206, end: 20131022
  5. DUODOPA [Suspect]
     Active Substance: CARBIDOPA\LEVODOPA
     Indication: PARKINSON^S DISEASE
     Dosage: AM = 3 ML, CD = 2.8 ML/H DURING 16H, ED = 1 ML
     Route: 050
     Dates: start: 20111206, end: 20111206

REACTIONS (13)
  - Decreased appetite [Unknown]
  - Apathy [Unknown]
  - General physical health deterioration [Unknown]
  - Stoma site infection [Unknown]
  - Death [Fatal]
  - Dyskinesia [Not Recovered/Not Resolved]
  - Muscle rigidity [Unknown]
  - Drug dose omission [Unknown]
  - Device use issue [Unknown]
  - Dysphagia [Unknown]
  - Mobility decreased [Not Recovered/Not Resolved]
  - Wheelchair user [Not Recovered/Not Resolved]
  - Gait disturbance [Unknown]

NARRATIVE: CASE EVENT DATE: 20160405
